FAERS Safety Report 5337256-7 (Version None)
Quarter: 2007Q2

REPORT INFORMATION
  Report Type: 
  Country: None (occurrence: None)
  Receive Date: 20070529
  Receipt Date: 20070523
  Transmission Date: 20071010
  Serious: No
  Sender: FDA-Public Use
  Company Number: B0464651A

PATIENT
  Age: 13 Year
  Sex: Male
  Weight: 55 kg

DRUGS (3)
  1. RELENZA [Suspect]
     Indication: INFLUENZA
     Dosage: 10MG TWICE PER DAY
     Route: 048
     Dates: start: 20070322, end: 20070326
  2. HUSCODE [Concomitant]
     Indication: INFLUENZA
     Dosage: 2TAB THREE TIMES PER DAY
     Route: 048
     Dates: start: 20070322, end: 20070326
  3. CALONAL [Concomitant]
     Indication: INFLUENZA
     Dosage: 200MG PER DAY
     Route: 048

REACTIONS (3)
  - ABNORMAL BEHAVIOUR [None]
  - FEELING ABNORMAL [None]
  - PALLOR [None]
